FAERS Safety Report 4798362-9 (Version None)
Quarter: 2005Q4

REPORT INFORMATION
  Report Type: 
  Country: None (occurrence: None)
  Receive Date: 20051011
  Receipt Date: 20051003
  Transmission Date: 20060501
  Serious: Yes (Hospitalization)
  Sender: FDA-Public Use
  Company Number: 163-20785-05100032

PATIENT
  Age: 10 Year
  Sex: Male

DRUGS (3)
  1. THALOMID [Suspect]
     Indication: CROHN'S DISEASE
     Dosage: 100 MG, DAILY, ORAL
     Route: 048
     Dates: start: 20030301
  2. PENTASA [Suspect]
     Indication: CROHN'S DISEASE
  3. MERCAPTOPURINE [Suspect]
     Indication: CROHN'S DISEASE

REACTIONS (1)
  - APPENDICITIS [None]
